FAERS Safety Report 6656950-9 (Version None)
Quarter: 2010Q1

REPORT INFORMATION
  Report Type: 
  Country: None (occurrence: None)
  Receive Date: 20100330
  Receipt Date: 20100319
  Transmission Date: 20100710
  Serious: Yes (Hospitalization)
  Sender: FDA-Public Use
  Company Number: US-ABBOTT-10P-163-0633223-00

PATIENT
  Sex: Female
  Weight: 70.824 kg

DRUGS (1)
  1. SIMCOR [Suspect]
     Indication: BLOOD CHOLESTEROL INCREASED
     Dosage: 500/20
     Dates: start: 20091201

REACTIONS (4)
  - ANIMAL BITE [None]
  - ERYTHEMA [None]
  - FLUSHING [None]
  - WOUND INFECTION BACTERIAL [None]
